FAERS Safety Report 20631056 (Version 1)
Quarter: 2022Q1

REPORT INFORMATION
  Report Type: Spontaneous
  Country: JP (occurrence: JP)
  Receive Date: 20220324
  Receipt Date: 20220324
  Transmission Date: 20220423
  Serious: Yes (Other)
  Sender: FDA-Public Use
  Company Number: JP-ASTELLAS-2022JP004593

PATIENT
  Sex: Female

DRUGS (2)
  1. PROGRAF [Suspect]
     Active Substance: TACROLIMUS
     Indication: Systemic lupus erythematosus
     Dosage: 4 MG/DAY, UNKNOWN FREQ.
     Route: 064
  2. PROGRAF [Suspect]
     Active Substance: TACROLIMUS
     Indication: Lupus nephritis

REACTIONS (1)
  - Low birth weight baby [Unknown]
